FAERS Safety Report 21228036 (Version 1)
Quarter: 2022Q3

REPORT INFORMATION
  Report Type: Spontaneous
  Country: IN (occurrence: IN)
  Receive Date: 20220818
  Receipt Date: 20220818
  Transmission Date: 20221027
  Serious: Yes (Other)
  Sender: FDA-Public Use
  Company Number: IN-SUN PHARMACEUTICAL INDUSTRIES LTD-2022R1-349087

PATIENT
  Age: 38 Year
  Sex: Male

DRUGS (1)
  1. PREDNISONE [Suspect]
     Active Substance: PREDNISONE
     Indication: Leprosy
     Dosage: 60 MILLIGRAM, DAILY
     Route: 048

REACTIONS (5)
  - Type 2 lepra reaction [Unknown]
  - Ulnar nerve palsy [Unknown]
  - Intussusception [Unknown]
  - Strongyloidiasis [Unknown]
  - Acute abdomen [Unknown]
